FAERS Safety Report 24239267 (Version 4)
Quarter: 2024Q4

REPORT INFORMATION
  Report Type: Spontaneous
  Country: ES (occurrence: ES)
  Receive Date: 20240822
  Receipt Date: 20241007
  Transmission Date: 20250114
  Serious: Yes (Other)
  Sender: AMGEN
  Company Number: ES-ROCHE-3541345

PATIENT
  Age: 69 Year
  Sex: Male
  Weight: 91.1 kg

DRUGS (61)
  1. BEVACIZUMAB [Suspect]
     Active Substance: BEVACIZUMAB
     Indication: Hepatocellular carcinoma
     Dosage: 1445 MILLIGRAM, Q3WK (MOST RECENT DOSE OF STUDY DRUG ADMINISTERED WAS:1365 MGMOST RECENT DOSE OF STU
     Route: 042
     Dates: start: 20240131
  2. TIRAGOLUMAB [Suspect]
     Active Substance: TIRAGOLUMAB
     Indication: Hepatocellular carcinoma
     Dosage: UNK UNK, Q3WK
     Route: 040
     Dates: start: 20240131
  3. ATEZOLIZUMAB [Suspect]
     Active Substance: ATEZOLIZUMAB
     Indication: Hepatocellular carcinoma
     Dosage: 1200 MILLIGRAM, Q3WK (MOST RECENT DOSE OF STUDY DRUG PRIOR TO AE WAS ADMINISTERED ON 13/MAR/2024 (12
     Route: 040
     Dates: start: 20240131
  4. TORSEMIDE [Concomitant]
     Active Substance: TORSEMIDE
     Indication: Product used for unknown indication
     Dosage: 5 MILLIGRAM, QD
     Route: 065
     Dates: start: 20231221
  5. DUPHALAC [Concomitant]
     Active Substance: LACTULOSE
     Indication: Constipation
     Dosage: UNK
     Route: 048
     Dates: start: 20240118, end: 20240221
  6. ELIQUIS [Concomitant]
     Active Substance: APIXABAN
     Dosage: 5 MILLIGRAM
     Route: 048
     Dates: start: 20220321
  7. ELIQUIS [Concomitant]
     Active Substance: APIXABAN
     Dosage: 5 MILLIGRAM
     Route: 048
  8. PENTOXIFYLLINE [Concomitant]
     Active Substance: PENTOXIFYLLINE
     Dosage: 600 MILLIGRAM
     Route: 048
     Dates: start: 20230523
  9. PENTOXIFYLLINE [Concomitant]
     Active Substance: PENTOXIFYLLINE
     Dosage: 600 MILLIGRAM
     Route: 048
  10. SODIUM LAURYL SULFOACETATE [Concomitant]
     Active Substance: SODIUM LAURYL SULFOACETATE
     Indication: Constipation
     Dosage: 45 MILLIGRAM, AS NECESSARY
     Route: 054
     Dates: start: 20240217, end: 20240220
  11. AMIODARONE HYDROCHLORIDE [Concomitant]
     Active Substance: AMIODARONE HYDROCHLORIDE
     Dosage: 200 MILLIGRAM, BID
     Route: 048
     Dates: start: 20230918
  12. AMIODARONE HYDROCHLORIDE [Concomitant]
     Active Substance: AMIODARONE HYDROCHLORIDE
     Dosage: 200 MILLIGRAM
     Route: 048
     Dates: start: 20230918
  13. EPLERENONE [Concomitant]
     Active Substance: EPLERENONE
     Dosage: 25 MILLIGRAM, QD
     Route: 048
     Dates: start: 20211221
  14. EPLERENONE [Concomitant]
     Active Substance: EPLERENONE
     Dosage: 25 MILLIGRAM, QD
     Route: 048
  15. ROSUVASTATIN [Concomitant]
     Active Substance: ROSUVASTATIN
     Indication: Dyslipidaemia
     Dosage: 10 MILLIGRAM, QD
     Route: 048
     Dates: start: 20211221
  16. ROSUVASTATIN [Concomitant]
     Active Substance: ROSUVASTATIN
     Dosage: 10 MILLIGRAM, QD
     Route: 048
  17. Enema casen [Concomitant]
     Indication: Constipation
     Dosage: 139 MILLIGRAM
     Route: 054
     Dates: start: 20240222
  18. Enema casen [Concomitant]
     Dosage: 32 MILLIGRAM (FREQUENCY TEXT:1)
     Route: 054
     Dates: start: 20240222
  19. MOVICOL [Concomitant]
     Active Substance: POLYETHYLENE GLYCOL 3350\POTASSIUM CHLORIDE\SODIUM BICARBONATE\SODIUM CHLORIDE
     Indication: Constipation
     Dosage: 13.13 GRAM
     Route: 048
     Dates: start: 20240225, end: 20240227
  20. DIAZEPAM [Concomitant]
     Active Substance: DIAZEPAM
     Indication: Anxiety
     Dosage: 5 MILLIGRAM
     Route: 048
     Dates: start: 2007
  21. EZETIMIBE [Concomitant]
     Active Substance: EZETIMIBE
     Indication: Dyslipidaemia
     Dosage: 10 MILLIGRAM, QD
     Route: 048
     Dates: start: 20211221
  22. EZETIMIBE [Concomitant]
     Active Substance: EZETIMIBE
     Dosage: 10 MILLIGRAM, QD
     Route: 048
  23. ACETAMINOPHEN [Concomitant]
     Active Substance: ACETAMINOPHEN
     Indication: Abdominal pain upper
     Dosage: 1 GRAM, QD
     Route: 048
     Dates: start: 20240221
  24. ACETAMINOPHEN [Concomitant]
     Active Substance: ACETAMINOPHEN
     Dosage: 1 GRAM
     Route: 048
  25. VALSARTAN [Concomitant]
     Active Substance: VALSARTAN
     Dosage: 26 MILLIGRAM, QD
     Route: 048
     Dates: start: 20211221
  26. VALSARTAN [Concomitant]
     Active Substance: VALSARTAN
     Dosage: 26 MILLIGRAM
     Route: 048
  27. PANTOPRAZOLE SODIUM [Concomitant]
     Active Substance: PANTOPRAZOLE SODIUM
     Dosage: 20 MILLIGRAM, QD
     Route: 048
     Dates: start: 20211230
  28. SODIUM CITRATE [Concomitant]
     Active Substance: SODIUM CITRATE
     Indication: Constipation
     Dosage: 450 MILLIGRAM
     Route: 054
     Dates: start: 20240217, end: 20240220
  29. BISOPROLOL FUMARATE [Concomitant]
     Active Substance: BISOPROLOL FUMARATE
     Dosage: 2.5 MILLIGRAM, QD
     Route: 048
     Dates: start: 20220608
  30. BISOPROLOL FUMARATE [Concomitant]
     Active Substance: BISOPROLOL FUMARATE
     Dosage: 2.5 MILLIGRAM, QD (GIVEN FOR PROPHYLAXIS IS YES)
     Route: 048
  31. EMPAGLIFLOZIN [Concomitant]
     Active Substance: EMPAGLIFLOZIN
     Indication: Type 2 diabetes mellitus
     Dosage: 25 MILLIGRAM, QD
     Route: 048
     Dates: start: 20221003
  32. SACUBITRILO [Concomitant]
     Dosage: 24 MILLIGRAM
     Route: 048
     Dates: start: 20211221
  33. SACUBITRILO [Concomitant]
     Dosage: 24 MILLIGRAM
     Route: 048
  34. EBASTINE [Concomitant]
     Active Substance: EBASTINE
     Indication: Hypersensitivity
     Dosage: 20 MILLIGRAM, QD
     Route: 048
     Dates: start: 20231219
  35. EBASTINE [Concomitant]
     Active Substance: EBASTINE
     Dosage: UNK UNK, QD
     Route: 048
     Dates: start: 20240304
  36. EBASTINE [Concomitant]
     Active Substance: EBASTINE
     Dosage: 20 MILLIGRAM
     Route: 048
  37. FISIOCREM [Concomitant]
     Indication: Dermatitis contact
     Dosage: 250 MILLILITER
     Route: 061
     Dates: start: 20240518, end: 20240521
  38. FISIOCREM [Concomitant]
     Dosage: 250 MILLILITER
     Route: 061
  39. MICONAZOLE NITRATE [Concomitant]
     Active Substance: MICONAZOLE NITRATE
     Indication: Dermatitis contact
     Dosage: UNK
     Route: 061
     Dates: start: 20240524, end: 20240602
  40. MICONAZOLE NITRATE [Concomitant]
     Active Substance: MICONAZOLE NITRATE
     Dosage: UNK (DRUG DOSE FIRST ADMINISTERED IS 20 OTHER)
     Route: 061
  41. EPINEPHRINE HYDROCHLORIDE [Concomitant]
     Active Substance: EPINEPHRINE HYDROCHLORIDE
     Indication: Gingival bleeding
     Dosage: 0.5 MILLIGRAM, QD
     Route: 061
     Dates: start: 20240527
  42. EPINEPHRINE HYDROCHLORIDE [Concomitant]
     Active Substance: EPINEPHRINE HYDROCHLORIDE
     Indication: Epistaxis
     Dosage: 0.5 MILLIGRAM
     Route: 061
  43. PROPOFOL [Concomitant]
     Active Substance: PROPOFOL
     Dosage: 250 MILLIGRAM
     Route: 040
     Dates: start: 20240806, end: 20240806
  44. PROPOFOL [Concomitant]
     Active Substance: PROPOFOL
     Dosage: 250 MILLIGRAM, QD
     Route: 065
  45. CHLORHEXIDINE [Concomitant]
     Active Substance: CHLORHEXIDINE
     Indication: Epistaxis
     Dosage: UNK UNK, QD
     Route: 048
     Dates: start: 20240527
  46. CHLORHEXIDINE [Concomitant]
     Active Substance: CHLORHEXIDINE
     Indication: Gingival bleeding
     Dosage: 0.12 PERCENT, QD
     Route: 048
  47. RUTIN [Concomitant]
     Active Substance: RUTIN
     Indication: Gingival bleeding
     Dosage: 0.2 MILLIGRAM, AS NECESSARY
     Route: 061
     Dates: start: 20240527
  48. RUTIN [Concomitant]
     Active Substance: RUTIN
     Indication: Epistaxis
     Dosage: 0.2 MILLIGRAM
     Route: 061
  49. Mst [Concomitant]
     Indication: Abdominal pain upper
     Dosage: 10 MILLIGRAM, QD (VIAL)
     Route: 048
     Dates: start: 20240619, end: 20240620
  50. LEXXEMA [Concomitant]
     Indication: Dermatitis contact
     Dosage: 1 PERCENT
     Route: 061
     Dates: start: 20240521, end: 20240523
  51. LEXXEMA [Concomitant]
     Dosage: 0.1 PERCENT
     Route: 061
  52. NAPHAZOLINE [Concomitant]
     Active Substance: NAPHAZOLINE\NAPHAZOLINE HYDROCHLORIDE
     Indication: Gingival bleeding
     Dosage: 0.5 MILLIGRAM, QD
     Route: 061
     Dates: start: 20240527
  53. NAPHAZOLINE [Concomitant]
     Active Substance: NAPHAZOLINE\NAPHAZOLINE HYDROCHLORIDE
     Indication: Epistaxis
     Dosage: 0.5 MILLIGRAM
     Route: 061
  54. ENOXAPARIN [Concomitant]
     Active Substance: ENOXAPARIN
     Dosage: 80 MILLIGRAM, QD
     Route: 030
     Dates: start: 20240803, end: 20240805
  55. ENOXAPARIN [Concomitant]
     Active Substance: ENOXAPARIN
     Dosage: 80 MILLIGRAM, QD
     Route: 030
     Dates: start: 20240803, end: 20240805
  56. EBASTINE [Concomitant]
     Active Substance: EBASTINE
     Indication: Dermatitis contact
     Dosage: 5 MILLIGRAM, QD
     Route: 048
     Dates: start: 20240521, end: 20240523
  57. HYDROCORTISONE [Concomitant]
     Active Substance: HYDROCORTISONE
     Indication: Dermatitis contact
     Dosage: UNK UNK, QD
     Route: 061
     Dates: start: 20240524, end: 20240602
  58. HYDROCORTISONE [Concomitant]
     Active Substance: HYDROCORTISONE
     Dosage: UNK (DRUG DOSE FIRST ADMINISTERED IS 10 OTHER)
     Route: 061
  59. AMOXICILLIN [Concomitant]
     Active Substance: AMOXICILLIN
     Dosage: 875 MILLIGRAM (TABLET)
     Route: 048
     Dates: start: 20240808, end: 20240828
  60. AMOXICILLIN [Concomitant]
     Active Substance: AMOXICILLIN
     Dosage: 20 MILLIGRAM, QD (INJECTION, SOLUTION )
     Route: 040
     Dates: start: 20240808, end: 20240808
  61. SORAFENIB [Concomitant]
     Active Substance: SORAFENIB
     Indication: Hepatic cancer
     Dosage: UNK
     Route: 048
     Dates: start: 20240905

REACTIONS (2)
  - Hyperthyroidism [Not Recovered/Not Resolved]
  - Off label use [Unknown]

NARRATIVE: CASE EVENT DATE: 20240404
